FAERS Safety Report 21648053 (Version 1)
Quarter: 2022Q4

REPORT INFORMATION
  Report Type: Spontaneous
  Country: PT (occurrence: PT)
  Receive Date: 20221128
  Receipt Date: 20221128
  Transmission Date: 20230112
  Serious: Yes (Life-Threatening, Other)
  Sender: FDA-Public Use
  Company Number: PT-MYLANLABS-2022M1119696

PATIENT
  Age: 43 Year
  Sex: Male

DRUGS (14)
  1. AMOXICILLIN\CLAVULANIC ACID [Suspect]
     Active Substance: AMOXICILLIN\CLAVULANIC ACID
     Indication: Odynophagia
     Dosage: UNK
     Route: 065
  2. AMOXICILLIN\CLAVULANIC ACID [Suspect]
     Active Substance: AMOXICILLIN\CLAVULANIC ACID
     Indication: Pyrexia
  3. MEROPENEM [Suspect]
     Active Substance: MEROPENEM
     Indication: Product used for unknown indication
     Dosage: UNK
     Route: 065
  4. PIPERACILLIN AND TAZOBACTAM [Suspect]
     Active Substance: PIPERACILLIN SODIUM\TAZOBACTAM SODIUM
     Indication: Product used for unknown indication
     Dosage: UNK
     Route: 065
  5. PENICILLIN G BENZATHINE [Suspect]
     Active Substance: PENICILLIN G BENZATHINE
     Indication: Odynophagia
     Dosage: 3 DOSAGES
     Route: 065
  6. PENICILLIN G BENZATHINE [Suspect]
     Active Substance: PENICILLIN G BENZATHINE
     Indication: Pyrexia
  7. PENICILLIN G BENZATHINE\PENICILLIN G POTASSIUM\PENICILLIN G PROCAINE [Suspect]
     Active Substance: PENICILLIN G BENZATHINE\PENICILLIN G POTASSIUM\PENICILLIN G PROCAINE
     Indication: Odynophagia
     Dosage: 3 DOSAGES
     Route: 065
  8. PENICILLIN G BENZATHINE\PENICILLIN G POTASSIUM\PENICILLIN G PROCAINE [Suspect]
     Active Substance: PENICILLIN G BENZATHINE\PENICILLIN G POTASSIUM\PENICILLIN G PROCAINE
     Indication: Pyrexia
  9. PENICILLIN G POTASSIUM [Suspect]
     Active Substance: PENICILLIN G POTASSIUM
     Indication: Odynophagia
     Dosage: 3 DOSAGES
     Route: 065
  10. PENICILLIN G POTASSIUM [Suspect]
     Active Substance: PENICILLIN G POTASSIUM
     Indication: Pyrexia
  11. PENICILLIN G SODIUM [Suspect]
     Active Substance: PENICILLIN G SODIUM
     Indication: Odynophagia
     Dosage: 3 DOSAGES
     Route: 065
  12. PENICILLIN G SODIUM [Suspect]
     Active Substance: PENICILLIN G SODIUM
     Indication: Pyrexia
  13. FILGRASTIM [Concomitant]
     Active Substance: FILGRASTIM
     Indication: Product used for unknown indication
     Dosage: UNK
     Route: 065
  14. VANCOMYCIN [Concomitant]
     Active Substance: VANCOMYCIN
     Indication: Product used for unknown indication
     Dosage: UNK
     Route: 065

REACTIONS (2)
  - Agranulocytosis [Recovered/Resolved]
  - Leukopenia [Recovered/Resolved]
